FAERS Safety Report 7014760-7 (Version None)
Quarter: 2010Q3

REPORT INFORMATION
  Report Type: 
  Country: None (occurrence: None)
  Receive Date: 20100927
  Receipt Date: 20100922
  Transmission Date: 20110219
  Serious: Yes (Hospitalization)
  Sender: FDA-Public Use
  Company Number: BR-ROCHE-728798

PATIENT
  Sex: Female
  Weight: 72 kg

DRUGS (5)
  1. RIVOTRIL [Suspect]
     Indication: PANIC DISORDER
     Route: 048
     Dates: start: 20020201
  2. RIVOTRIL [Suspect]
     Dosage: DOSE DECREASED
     Route: 048
  3. TRILEPTAL [Concomitant]
     Indication: EPILEPSY
  4. FLUOXETINE [Concomitant]
     Indication: DEPRESSION
  5. CALCIUM [Concomitant]
     Indication: BONE DISORDER
     Dosage: FREQUENCY: DAILY

REACTIONS (4)
  - BRAIN CANCER METASTATIC [None]
  - BRAIN NEOPLASM [None]
  - BRAIN NEOPLASM MALIGNANT [None]
  - SOMNOLENCE [None]
